FAERS Safety Report 14012600 (Version 1)
Quarter: 2017Q3

REPORT INFORMATION
  Report Type: Spontaneous
  Country: DK (occurrence: DK)
  Receive Date: 20170926
  Receipt Date: 20170926
  Transmission Date: 20171128
  Serious: Yes (Hospitalization)
  Sender: FDA-Public Use
  Company Number: DK-SILVERGATE PHARMACEUTICALS, INC.-2017SIL00015

PATIENT
  Age: 13 Year
  Sex: Female

DRUGS (2)
  1. METHOTREXATE. [Suspect]
     Active Substance: METHOTREXATE
     Dosage: 12 MG, UNK
     Route: 037
  2. METHOTREXATE. [Suspect]
     Active Substance: METHOTREXATE
     Indication: ACUTE LYMPHOCYTIC LEUKAEMIA
     Dosage: 5.0 G/M2, UNK
     Route: 065

REACTIONS (3)
  - Electroencephalogram abnormal [Recovered/Resolved]
  - Coma [Recovered/Resolved]
  - Neurotoxicity [Recovered/Resolved]
